FAERS Safety Report 10072308 (Version 3)
Quarter: 2014Q2

REPORT INFORMATION
  Report Type: Spontaneous
  Country: US (occurrence: US)
  Receive Date: 20140411
  Receipt Date: 20140523
  Transmission Date: 20141212
  Serious: Yes (Other)
  Sender: FDA-Public Use
  Company Number: US-SA-2014SA039796

PATIENT
  Age: 51 Year
  Sex: Male
  Weight: 185 kg

DRUGS (15)
  1. LANTUS [Suspect]
     Indication: DIABETES MELLITUS
     Route: 065
     Dates: start: 20000103, end: 201402
  2. LANTUS [Suspect]
     Indication: DIABETES MELLITUS
     Route: 065
     Dates: start: 20140326
  3. NAPROXEN [Concomitant]
     Indication: BACK PAIN
     Dosage: 1-2 TABLETS A DAY.
     Dates: start: 20140325
  4. NEXIUM [Concomitant]
     Indication: GASTROOESOPHAGEAL REFLUX DISEASE
     Dosage: IN MORNING
     Dates: start: 20140325
  5. BGSTAR TEST STRIPS [Concomitant]
     Indication: DIABETES MELLITUS
     Dosage: 400 EACH
     Dates: start: 20140303
  6. BGSTAR LANCETS [Concomitant]
     Indication: DIABETES MELLITUS
     Dosage: 300 EACH
     Dates: start: 20140325
  7. HUMALOG [Concomitant]
     Dosage: 100 UNITS/ML SOLUTION
  8. PRAVACHOL [Concomitant]
  9. LODINE [Concomitant]
     Indication: ARTHRITIS
  10. FOLVITE [Concomitant]
     Indication: VITAMIN SUPPLEMENTATION
     Route: 048
  11. HYDRODIURIL [Concomitant]
     Route: 048
  12. NOVOLIN [Concomitant]
     Indication: DIABETES MELLITUS
     Dosage: DOSE:30 UNIT(S)
     Route: 058
  13. HYDROCHLOROTHIAZIDE/LISINOPRIL [Concomitant]
     Route: 048
  14. FLOMAX [Concomitant]
     Indication: PROSTATOMEGALY
     Route: 048
  15. DOXAZOSIN [Concomitant]

REACTIONS (8)
  - Renal cancer [Unknown]
  - Dementia [Unknown]
  - Chest pain [Unknown]
  - Prostatic disorder [Unknown]
  - Crying [Unknown]
  - Psychotic disorder [Unknown]
  - Blood glucose increased [Unknown]
  - Drug dose omission [Unknown]
